FAERS Safety Report 6099918-6 (Version None)
Quarter: 2009Q1

REPORT INFORMATION
  Report Type: 
  Country: None (occurrence: None)
  Receive Date: 20090303
  Receipt Date: 20090217
  Transmission Date: 20090719
  Serious: Yes (Other)
  Sender: FDA-Public Use
  Company Number: JP-SANOFI-SYNTHELABO-A01200816568

PATIENT
  Sex: Female

DRUGS (9)
  1. ALOSENN [Concomitant]
     Indication: DRUG USE FOR UNKNOWN INDICATION
     Dosage: UNK
     Route: 065
  2. MAGLAX [Concomitant]
     Indication: DRUG USE FOR UNKNOWN INDICATION
     Dosage: UNK
     Route: 065
  3. CYANOCOBALAMIN [Concomitant]
     Indication: DRUG USE FOR UNKNOWN INDICATION
     Dosage: UNK
     Route: 065
  4. NORVASC [Concomitant]
     Indication: DRUG USE FOR UNKNOWN INDICATION
     Dosage: UNK
     Route: 065
     Dates: start: 20080701
  5. LENDORMIN [Concomitant]
     Indication: INSOMNIA
     Dosage: 0.5 MG
     Route: 065
     Dates: start: 20081028, end: 20081110
  6. HALCION [Suspect]
     Indication: INSOMNIA
     Dosage: UNK
     Route: 065
     Dates: start: 20080701, end: 20081027
  7. HALCION [Suspect]
     Dosage: 0.25 MG
     Route: 048
     Dates: start: 20081110, end: 20081112
  8. MYSLEE [Suspect]
     Indication: INSOMNIA
     Route: 048
     Dates: start: 20081110, end: 20081111
  9. MYSLEE [Suspect]
     Route: 048
     Dates: start: 20081205

REACTIONS (1)
  - VISUAL FIELD DEFECT [None]
